FAERS Safety Report 6260263-7 (Version None)
Quarter: 2009Q3

REPORT INFORMATION
  Report Type: 
  Country: None (occurrence: None)
  Receive Date: 20090708
  Receipt Date: 20090629
  Transmission Date: 20100115
  Serious: Yes (Hospitalization)
  Sender: FDA-Public Use
  Company Number: JP-ASTRAZENECA-2009SE02396

PATIENT
  Age: 78 Year
  Sex: Female
  Weight: 45 kg

DRUGS (8)
  1. IRESSA [Suspect]
     Indication: LUNG NEOPLASM MALIGNANT
     Route: 048
     Dates: start: 20090107, end: 20090214
  2. IRESSA [Suspect]
     Route: 048
     Dates: start: 20090607
  3. LENDORMIN D [Concomitant]
     Indication: INSOMNIA
     Route: 048
     Dates: start: 20081107
  4. MAGMITT [Concomitant]
     Indication: CONSTIPATION
     Route: 048
     Dates: start: 20081110
  5. MELBIN [Concomitant]
     Indication: DIABETES MELLITUS
     Route: 048
     Dates: start: 20081121
  6. X-RAY CONTRAST AGENTS [Concomitant]
  7. CARBOPLATIN [Concomitant]
     Dates: start: 20081105
  8. GEMZAR [Concomitant]
     Dates: start: 20081105

REACTIONS (1)
  - HEPATIC FUNCTION ABNORMAL [None]
